FAERS Safety Report 9665417 (Version 2)
Quarter: 2013Q4

REPORT INFORMATION
  Report Type: Report from Study
  Country: FR (occurrence: FR)
  Receive Date: 20131104
  Receipt Date: 20131114
  Transmission Date: 20140711
  Serious: Yes (Hospitalization)
  Sender: FDA-Public Use
  Company Number: FR-ROCHE-1294497

PATIENT
  Age: 84 Year
  Sex: Female
  Weight: 71.5 kg

DRUGS (17)
  1. VISMODEGIB [Suspect]
     Indication: BASAL CELL CARCINOMA
     Dosage: DATE OF LAST DOSE PRIOR TO EVENT: 18/AUG/2013
     Route: 048
     Dates: start: 20120110
  2. SOTALEX [Concomitant]
     Indication: PULMONARY EMBOLISM
     Route: 065
     Dates: start: 198301
  3. VASTAREL [Concomitant]
     Indication: MACULAR DEGENERATION
     Route: 065
     Dates: start: 200001, end: 20120723
  4. ZOCOR [Concomitant]
     Indication: DYSLIPIDAEMIA
     Route: 065
     Dates: start: 200001
  5. RYTHMOL [Concomitant]
     Indication: TACHYCARDIA
     Route: 065
     Dates: start: 200001
  6. XANAX [Concomitant]
     Indication: ANXIETY
     Route: 065
     Dates: start: 200801
  7. ACTONEL [Concomitant]
     Indication: OSTEOPOROSIS
     Route: 065
     Dates: start: 200801, end: 20120723
  8. DENSICAL VITAMINE D3 [Concomitant]
     Indication: OSTEOPOROSIS
     Route: 065
     Dates: start: 200801, end: 20120723
  9. ALDACTONE (FRANCE) [Concomitant]
     Indication: HYPERTENSION
     Route: 065
     Dates: start: 200001
  10. CORVASAL (FRANCE) [Concomitant]
     Route: 065
     Dates: start: 201106
  11. GAVISCON (ALGINIC ACID) [Concomitant]
     Indication: GASTROOESOPHAGEAL REFLUX DISEASE
     Route: 065
     Dates: start: 20121114, end: 20121211
  12. MOPRAL (FRANCE) [Concomitant]
     Indication: GASTROOESOPHAGEAL REFLUX DISEASE
     Route: 065
     Dates: start: 20121114, end: 20130308
  13. VAXIGRIP [Concomitant]
     Route: 065
     Dates: start: 20121026, end: 20121026
  14. NERISONE OILY CREAM [Concomitant]
     Route: 065
     Dates: start: 20130408
  15. VOGALENE [Concomitant]
     Indication: NAUSEA
     Route: 065
     Dates: start: 20130408, end: 20130501
  16. VOGALENE [Concomitant]
     Route: 065
     Dates: start: 20130724
  17. OMEPRAZOLE [Concomitant]
     Route: 065
     Dates: start: 20130502, end: 20130724

REACTIONS (1)
  - General physical health deterioration [Recovered/Resolved]
